FAERS Safety Report 24428732 (Version 2)
Quarter: 2025Q2

REPORT INFORMATION
  Report Type: Spontaneous
  Country: US (occurrence: US)
  Receive Date: 20241011
  Receipt Date: 20250509
  Transmission Date: 20250716
  Serious: No
  Sender: PFIZER
  Company Number: US-SEATTLE GENETICS-2024SGN00127

PATIENT
  Age: 62 Year
  Sex: Male

DRUGS (4)
  1. TUKYSA [Suspect]
     Active Substance: TUCATINIB
     Indication: Breast cancer metastatic
  2. TUKYSA [Suspect]
     Active Substance: TUCATINIB
  3. TUKYSA [Suspect]
     Active Substance: TUCATINIB
     Dosage: 250 MG, 2X/DAY (TAKE 5 TABLETS TWICE A DAY)
  4. TUKYSA [Suspect]
     Active Substance: TUCATINIB
     Dosage: 250 MG, 2X/DAY
     Dates: start: 202403

REACTIONS (2)
  - Brain fog [Unknown]
  - Off label use [Unknown]
